FAERS Safety Report 9069061 (Version 1)
Quarter: 2013Q1

REPORT INFORMATION
  Report Type: Spontaneous
  Country: US (occurrence: US)
  Receive Date: 20130215
  Receipt Date: 20130215
  Transmission Date: 20140127
  Serious: No
  Sender: FDA-Public Use
  Company Number: US-009507513-1302USA006831

PATIENT
  Sex: Female

DRUGS (2)
  1. PEGINTRON [Suspect]
     Indication: HEPATITIS C
     Dosage: UNK
     Dates: start: 20130210
  2. RIBAVIRIN [Suspect]
     Indication: HEPATITIS C
     Dosage: UNK
     Route: 048
     Dates: start: 20130210

REACTIONS (4)
  - Bone pain [Unknown]
  - Somnolence [Unknown]
  - Pain [Unknown]
  - Fatigue [Unknown]
